FAERS Safety Report 18289278 (Version 1)
Quarter: 2020Q3

REPORT INFORMATION
  Report Type: Spontaneous
  Country: JP (occurrence: JP)
  Receive Date: 20200921
  Receipt Date: 20200921
  Transmission Date: 20201103
  Serious: Yes (Hospitalization)
  Sender: FDA-Public Use
  Company Number: JP-SA-2020SA256860

PATIENT

DRUGS (6)
  1. ETHAMBUTOL [Suspect]
     Active Substance: ETHAMBUTOL HYDROCHLORIDE
     Indication: PULMONARY TUBERCULOSIS
  2. RIFADIN [Suspect]
     Active Substance: RIFAMPIN
     Indication: PULMONARY TUBERCULOSIS
     Dosage: RIFADIN CAPSULE150 MG
  3. STREPTOMYCIN [Concomitant]
     Active Substance: STREPTOMYCIN SULFATE
  4. CRAVIT [Suspect]
     Active Substance: LEVOFLOXACIN
     Indication: PULMONARY TUBERCULOSIS
  5. PYRAZINAMIDE. [Suspect]
     Active Substance: PYRAZINAMIDE
     Indication: PULMONARY TUBERCULOSIS
  6. ISONIAZID. [Suspect]
     Active Substance: ISONIAZID
     Indication: PULMONARY TUBERCULOSIS

REACTIONS (3)
  - Vascular pseudoaneurysm [Recovering/Resolving]
  - Pyrexia [Recovered/Resolved]
  - Lymph node tuberculosis [Recovering/Resolving]
